FAERS Safety Report 6795732-4 (Version None)
Quarter: 2010Q2

REPORT INFORMATION
  Report Type: 
  Country: None (occurrence: None)
  Receive Date: 20100625
  Receipt Date: 20100615
  Transmission Date: 20101027
  Serious: Yes (Hospitalization)
  Sender: FDA-Public Use
  Company Number: IT-ABBOTT-10P-083-0651503-00

PATIENT
  Age: 57 Year
  Sex: Female

DRUGS (4)
  1. AKINETON [Suspect]
     Indication: MANIA
     Dosage: 4 MG DAILY
     Route: 048
     Dates: start: 20000201, end: 20000315
  2. CARBOLITHIUM [Suspect]
     Indication: MANIA
     Dosage: 300 MG DAILY
     Route: 048
     Dates: start: 20000201, end: 20000315
  3. ALIDOL [Suspect]
     Indication: MANIA
     Dosage: 60 DROPS DAILY
     Route: 048
     Dates: start: 20000201, end: 20000315
  4. LORAZEPAM [Suspect]
     Indication: MANIA
     Dosage: 1 MG DAILY
     Route: 048
     Dates: start: 20000101, end: 20000201

REACTIONS (1)
  - CHOLESTASIS [None]
